FAERS Safety Report 8305796-4 (Version None)
Quarter: 2012Q2

REPORT INFORMATION
  Report Type: 
  Country: None (occurrence: None)
  Receive Date: 20120418
  Receipt Date: 20120404
  Transmission Date: 20120825
  Serious: Yes (Disabling, Other)
  Sender: FDA-Public Use
  Company Number: AUR-APL-2012-01702

PATIENT
  Age: 89 Year
  Sex: Male

DRUGS (8)
  1. CITALOPRAM HYDROBROMIDE [Concomitant]
  2. OMEPRAZOLE [Concomitant]
  3. ADCAL (CARBAZOCHROME) [Concomitant]
  4. CYANOCOBALAMIN [Concomitant]
  5. HYDROXYUREA [Concomitant]
  6. ACETAMINOPHEN [Concomitant]
  7. ALENDRONIC ACID (ALENDRONIC ACID) [Suspect]
     Indication: OSTEOPOROSIS
     Dosage: (70 MG, 1 IN 1 WK), ORAL
     Route: 048
     Dates: end: 20120112
  8. SYMBICORT [Concomitant]

REACTIONS (3)
  - LIP ULCERATION [None]
  - ORAL MUCOSAL ERYTHEMA [None]
  - MOUTH ULCERATION [None]
